FAERS Safety Report 4372228-0 (Version None)
Quarter: 2004Q2

REPORT INFORMATION
  Report Type: 
  Country: None (occurrence: None)
  Receive Date: 20040607
  Receipt Date: 20040601
  Transmission Date: 20050107
  Serious: Yes (Other)
  Sender: FDA-Public Use
  Company Number: FR-BRISTOL-MYERS SQUIBB COMPANY-12605176

PATIENT
  Age: 56 Year
  Sex: Female

DRUGS (5)
  1. EFAVIRENZ [Suspect]
     Indication: HIV INFECTION
     Dates: start: 20010501
  2. TENOFOVIR [Suspect]
     Indication: HIV INFECTION
     Dates: start: 20010501, end: 20020101
  3. LOPINAVIR + RITONAVIR [Suspect]
     Indication: HIV INFECTION
     Dates: start: 20010501
  4. LAMIVUDINE [Suspect]
     Indication: HIV INFECTION
     Dates: start: 20010501
  5. FENOFIBRATE [Concomitant]
     Indication: DYSLIPIDAEMIA

REACTIONS (2)
  - PAIN IN EXTREMITY [None]
  - RENAL TUBULAR DISORDER [None]
